FAERS Safety Report 5166009-8 (Version None)
Quarter: 2006Q4

REPORT INFORMATION
  Report Type: 
  Country: None (occurrence: None)
  Receive Date: 20061128
  Receipt Date: 20061106
  Transmission Date: 20070319
  Serious: Yes (Hospitalization)
  Sender: FDA-Public Use
  Company Number: 20063310

PATIENT
  Sex: Female

DRUGS (1)
  1. LIORESAL [Suspect]
     Indication: MUSCLE SPASTICITY
     Dosage: 180MCG/DAY, INTRATHECAL, SIMPLE
     Route: 037

REACTIONS (2)
  - MUSCULOSKELETAL STIFFNESS [None]
  - THERAPY NON-RESPONDER [None]
